FAERS Safety Report 18045626 (Version 1)
Quarter: 2020Q3

REPORT INFORMATION
  Report Type: Other
  Country: US (occurrence: US)
  Receive Date: 20200720
  Receipt Date: 20200720
  Transmission Date: 20201104
  Serious: Yes (Other)
  Sender: FDA-Public Use
  Company Number: US-ROCHE-2643595

PATIENT
  Age: 80 Year
  Sex: Female
  Weight: 38 kg

DRUGS (2)
  1. OSELTAMIVIR [Suspect]
     Active Substance: OSELTAMIVIR
     Indication: INFLUENZA
     Route: 065
  2. PIMODIVIR. [Suspect]
     Active Substance: PIMODIVIR
     Indication: INFLUENZA
     Route: 065

REACTIONS (1)
  - Hyperbilirubinaemia [Unknown]
